FAERS Safety Report 6518216-7 (Version None)
Quarter: 2009Q4

REPORT INFORMATION
  Report Type: 
  Country: None (occurrence: None)
  Receive Date: 20091218
  Receipt Date: 20091218
  Transmission Date: 20100525
  Serious: No
  Sender: FDA-Public Use
  Company Number: None

PATIENT
  Sex: Male

DRUGS (1)
  1. COLD REMEDY NASAL GEL [Suspect]
     Indication: SINUSITIS
     Dosage: AS DIRECTED
     Dates: start: 20080801

REACTIONS (2)
  - ANOSMIA [None]
  - DYSGEUSIA [None]
